FAERS Safety Report 12626681 (Version 2)
Quarter: 2016Q3

REPORT INFORMATION
  Report Type: Report from Study
  Country: CA (occurrence: CA)
  Receive Date: 20160805
  Receipt Date: 20160811
  Transmission Date: 20161109
  Serious: Yes (Life-Threatening, Hospitalization)
  Sender: FDA-Public Use
  Company Number: PHHY2015CA157611

PATIENT
  Age: 58 Year
  Sex: Male

DRUGS (1)
  1. SANDOSTATIN LAR DEPOT [Suspect]
     Active Substance: OCTREOTIDE ACETATE
     Indication: NEUROENDOCRINE TUMOUR
     Dosage: 30 MG, QMO (EVERY 4 WEEKS)
     Route: 030
     Dates: start: 20150117, end: 20160709

REACTIONS (4)
  - Terminal state [Unknown]
  - Malaise [Unknown]
  - Blood pressure systolic increased [Unknown]
  - Fatigue [Unknown]

NARRATIVE: CASE EVENT DATE: 20151128
